FAERS Safety Report 5370257-1 (Version None)
Quarter: 2007Q2

REPORT INFORMATION
  Report Type: 
  Country: None (occurrence: None)
  Receive Date: 20070614
  Receipt Date: 20070223
  Transmission Date: 20071010
  Serious: No
  Sender: FDA-Public Use
  Company Number: BDI-009180

PATIENT
  Age: 36 Year
  Sex: Male
  Weight: 122 kg

DRUGS (1)
  1. MULTIHANCE [Suspect]
     Dosage: 20 ML ONCE IV
     Route: 042
     Dates: start: 20070208, end: 20070208

REACTIONS (2)
  - NAUSEA [None]
  - VOMITING [None]
